FAERS Safety Report 25669799 (Version 1)
Quarter: 2025Q3

REPORT INFORMATION
  Report Type: Spontaneous
  Country: US (occurrence: None)
  Receive Date: 20250810
  Receipt Date: 20250810
  Transmission Date: 20251021
  Serious: Yes (Hospitalization)
  Sender: FDA-CTU
  Company Number: None

PATIENT
  Sex: Male

DRUGS (1)
  1. VERZENIO [Suspect]
     Active Substance: ABEMACICLIB
     Indication: Breast cancer
     Dosage: 150 MG TWICE A DAY ORAL ?
     Route: 048
     Dates: start: 20250503

REACTIONS (6)
  - Adverse drug reaction [None]
  - Asthenia [None]
  - Fall [None]
  - Pruritus [None]
  - Wheezing [None]
  - Dyspnoea [None]
